FAERS Safety Report 8581516 (Version 2)
Quarter: 2012Q4

REPORT INFORMATION
  Report Type: 
  Country: BR (occurrence: BR)
  Receive Date: 20120525
  Receipt Date: 20121102
  Transmission Date: 20130627
  Serious: Yes (Hospitalization)
  Sender: FDA-Public Use
  Company Number: BR-ASTRAZENECA-2012SE31868

PATIENT
  Age: 606 Month
  Sex: Male
  Weight: 83 kg

DRUGS (2)
  1. CRESTOR [Suspect]
     Indication: LIPIDS INCREASED
     Route: 048
     Dates: start: 201107, end: 201202
  2. CRESTOR [Suspect]
     Indication: LIPIDS INCREASED
     Route: 048

REACTIONS (3)
  - Angina pectoris [Recovered/Resolved]
  - Lipids increased [Recovered/Resolved]
  - Drug ineffective [Unknown]
